FAERS Safety Report 13909938 (Version 12)
Quarter: 2019Q1

REPORT INFORMATION
  Report Type: Report from Study
  Country: US (occurrence: US)
  Receive Date: 20170828
  Receipt Date: 20190228
  Transmission Date: 20190417
  Serious: Yes (Life-Threatening, Hospitalization)
  Sender: FDA-Public Use
  Company Number: US-ROCHE-1982872

PATIENT
  Age: 77 Year
  Sex: Male
  Weight: 95 kg

DRUGS (32)
  1. BISACODYL. [Concomitant]
     Active Substance: BISACODYL
     Indication: DIARRHOEA
     Route: 047
     Dates: start: 20170901, end: 20170906
  2. MAGNESIUM OXIDE. [Concomitant]
     Active Substance: MAGNESIUM OXIDE
     Route: 048
     Dates: start: 20170819, end: 20170820
  3. SEVELAMER CARBONATE. [Concomitant]
     Active Substance: SEVELAMER CARBONATE
     Indication: TUMOUR LYSIS SYNDROME
     Route: 048
     Dates: start: 20170807, end: 20170906
  4. PLATELETS [Concomitant]
     Active Substance: HUMAN PLATELET, ALLOGENIC
     Dosage: 1 UNIT, PRN
     Route: 042
     Dates: start: 20170728, end: 20170728
  5. RED BLOOD CELLS [Concomitant]
     Active Substance: HUMAN RED BLOOD CELL
     Dosage: I UNIT, PRN
     Route: 042
     Dates: start: 20170815, end: 20170815
  6. HYDROXYUREA. [Concomitant]
     Active Substance: HYDROXYUREA
     Indication: PLATELET COUNT DECREASED
     Route: 048
     Dates: start: 20170724, end: 20170807
  7. ISAVUCONAZOLE [Concomitant]
     Active Substance: ISAVUCONAZOLE
     Indication: SEPSIS
  8. CEFEPIME [Concomitant]
     Active Substance: CEFEPIME HYDROCHLORIDE
     Indication: FEBRILE NEUTROPENIA
     Route: 042
     Dates: start: 20170804, end: 20170807
  9. PLATELETS [Concomitant]
     Active Substance: HUMAN PLATELET, ALLOGENIC
     Indication: THROMBOCYTOPENIA
     Dosage: 1 UNIT, PRN
     Route: 042
     Dates: start: 20170802, end: 20170802
  10. ALLOPURINOL. [Concomitant]
     Active Substance: ALLOPURINOL
     Indication: GOUT
     Route: 048
     Dates: start: 20170807
  11. ATORVASTATIN [Concomitant]
     Active Substance: ATORVASTATIN
     Route: 048
     Dates: start: 20170902, end: 20170906
  12. COBIMETINIB. [Suspect]
     Active Substance: COBIMETINIB
     Indication: ACUTE MYELOID LEUKAEMIA
     Dosage: DATE OF MOST RECENT DOSES PRIOR TO REDUCTION IN LVEF WERE 21/AUG/2017 DOSE RECEIVED: 40 MG?DATE OF M
     Route: 048
     Dates: start: 20170803
  13. PLATELETS [Concomitant]
     Active Substance: HUMAN PLATELET, ALLOGENIC
     Dosage: 1 UNIT, PRN
     Route: 042
     Dates: start: 20170804, end: 20170804
  14. RED BLOOD CELLS [Concomitant]
     Active Substance: HUMAN RED BLOOD CELL
     Indication: ANAEMIA
     Dosage: I UNIT, PRN
     Route: 042
     Dates: start: 20170807, end: 20170807
  15. ACYCLOVIR. [Concomitant]
     Active Substance: ACYCLOVIR
     Indication: PROPHYLAXIS
     Route: 048
     Dates: start: 20170807
  16. MAGNESIUM OXIDE. [Concomitant]
     Active Substance: MAGNESIUM OXIDE
     Route: 048
     Dates: start: 20170819, end: 20170820
  17. MIRALAX [Concomitant]
     Active Substance: POLYETHYLENE GLYCOL 3350
     Indication: CONSTIPATION
     Route: 048
     Dates: start: 20170809
  18. ISAVUCONAZOLE [Concomitant]
     Active Substance: ISAVUCONAZOLE
     Indication: INFECTION
     Route: 048
     Dates: start: 20170904, end: 20170906
  19. LIDOCAINE. [Concomitant]
     Active Substance: LIDOCAINE
     Indication: BACK PAIN
     Dosage: 5 ML (MILLILITER; CM3)
     Route: 061
     Dates: start: 20170731, end: 20170808
  20. PLATELETS [Concomitant]
     Active Substance: HUMAN PLATELET, ALLOGENIC
     Dosage: 1 UNIT, PRN
     Route: 042
     Dates: start: 20170805, end: 20170805
  21. VENETOCLAX. [Suspect]
     Active Substance: VENETOCLAX
     Indication: ACUTE MYELOID LEUKAEMIA
     Dosage: DATE OF MOST RECENT DOSES PRIOR TO REDUCTION IN LVEF WERE 21/AUG/2017 DOSE RECEIVED: 800 MG?VENETOCL
     Route: 048
     Dates: start: 20170803
  22. NYSTATIN. [Concomitant]
     Active Substance: NYSTATIN
     Indication: SEPSIS
  23. ATENOLOL. [Concomitant]
     Active Substance: ATENOLOL
     Indication: CORONARY ARTERY DISEASE
     Route: 048
     Dates: start: 20170309, end: 20170906
  24. PLATELETS [Concomitant]
     Active Substance: HUMAN PLATELET, ALLOGENIC
     Dosage: 2 UNIT, PRN
     Route: 042
     Dates: start: 20170807, end: 20170807
  25. PLATELETS [Concomitant]
     Active Substance: HUMAN PLATELET, ALLOGENIC
     Dosage: 1 UNIT, PRN
     Route: 042
     Dates: start: 20170815, end: 20170815
  26. LEVOFLOXACIN. [Concomitant]
     Active Substance: LEVOFLOXACIN
     Indication: PROPHYLAXIS
     Route: 048
     Dates: start: 20170710, end: 20170807
  27. ERGOCALCIFEROL. [Concomitant]
     Active Substance: ERGOCALCIFEROL
     Indication: NUTRITIONAL SUPPLEMENTATION
     Dosage: 50000 UNIT
     Route: 048
     Dates: start: 20170902, end: 20170906
  28. LIDOCAINE. [Concomitant]
     Active Substance: LIDOCAINE
     Indication: BACK PAIN
     Dosage: 5 ML (MILLILITER; CM3)
     Route: 061
     Dates: start: 20170817, end: 20170906
  29. NYSTATIN. [Concomitant]
     Active Substance: NYSTATIN
     Indication: INFECTION
     Dosage: ON 25AUG2017
     Route: 048
     Dates: start: 20170819, end: 20170906
  30. PLATELETS [Concomitant]
     Active Substance: HUMAN PLATELET, ALLOGENIC
     Dosage: 1 UNIT, PRN
     Route: 042
     Dates: start: 20170810, end: 20170810
  31. PLATELETS [Concomitant]
     Active Substance: HUMAN PLATELET, ALLOGENIC
     Dosage: 1 UNIT, PRN
     Route: 042
     Dates: start: 20170813, end: 20170813
  32. PLATELETS [Concomitant]
     Active Substance: HUMAN PLATELET, ALLOGENIC
     Dosage: 1 UNIT, PRN
     Route: 042
     Dates: start: 20170817, end: 20170817

REACTIONS (3)
  - Sepsis [Not Recovered/Not Resolved]
  - Ejection fraction decreased [Recovering/Resolving]
  - Decreased appetite [Not Recovered/Not Resolved]

NARRATIVE: CASE EVENT DATE: 20170810
